FAERS Safety Report 17802574 (Version 1)
Quarter: 2020Q2

REPORT INFORMATION
  Report Type: Spontaneous
  Country: US (occurrence: US)
  Receive Date: 20200518
  Receipt Date: 20200518
  Transmission Date: 20200714
  Serious: No
  Sender: FDA-Public Use
  Company Number: None

PATIENT
  Sex: Female

DRUGS (1)
  1. NEULASTA [Suspect]
     Active Substance: PEGFILGRASTIM
     Indication: NEUTROPENIA
     Dosage: ?          OTHER FREQUENCY:EVERY21DAYS ;?
     Route: 058
     Dates: start: 20200420

REACTIONS (3)
  - Eye disorder [None]
  - Confusional state [None]
  - Somnolence [None]
